FAERS Safety Report 12303465 (Version 2)
Quarter: 2017Q4

REPORT INFORMATION
  Report Type: Spontaneous
  Country: US (occurrence: US)
  Receive Date: 20160426
  Receipt Date: 20171123
  Transmission Date: 20180320
  Serious: No
  Sender: FDA-Public Use
  Company Number: US-JNJFOC-20160411764

PATIENT
  Sex: Male

DRUGS (30)
  1. RISPERDAL [Suspect]
     Active Substance: RISPERIDONE
     Indication: DEPRESSION
     Route: 048
     Dates: end: 20060525
  2. RISPERDAL [Suspect]
     Active Substance: RISPERIDONE
     Indication: DEPRESSION
     Route: 048
     Dates: start: 20040506
  3. RISPERDAL [Suspect]
     Active Substance: RISPERIDONE
     Indication: BIPOLAR DISORDER
     Route: 048
     Dates: start: 20060426
  4. RISPERDAL [Suspect]
     Active Substance: RISPERIDONE
     Indication: BIPOLAR DISORDER
     Dosage: VARYING DOSES OF 01 MG AND 03 MG, VARYING FREQUENCIES INCLUDED (03 EVERY DAY/ ONE EVERY DAY).
     Route: 048
     Dates: start: 20040615, end: 20040729
  5. RISPERDAL [Suspect]
     Active Substance: RISPERIDONE
     Indication: BIPOLAR DISORDER
     Route: 048
     Dates: start: 20060425
  6. RISPERDAL [Suspect]
     Active Substance: RISPERIDONE
     Indication: DEPRESSION
     Route: 048
     Dates: start: 19991122, end: 20000328
  7. RISPERDAL [Suspect]
     Active Substance: RISPERIDONE
     Indication: AGGRESSION
     Route: 048
     Dates: start: 20040506
  8. RISPERDAL [Suspect]
     Active Substance: RISPERIDONE
     Indication: BIPOLAR DISORDER
     Route: 048
     Dates: start: 20011126, end: 20020311
  9. RISPERDAL [Suspect]
     Active Substance: RISPERIDONE
     Indication: DEPRESSION
     Dosage: VARYING DOSES OF 01 MG AND 03 MG, VARYING FREQUENCIES INCLUDED (03 EVERY DAY/ ONE EVERY DAY).
     Route: 048
     Dates: start: 20040615, end: 20040729
  10. RISPERDAL [Suspect]
     Active Substance: RISPERIDONE
     Indication: DEPRESSION
     Route: 048
     Dates: start: 20060425
  11. RISPERDAL [Suspect]
     Active Substance: RISPERIDONE
     Indication: AGGRESSION
     Route: 048
     Dates: end: 20040809
  12. RISPERDAL [Suspect]
     Active Substance: RISPERIDONE
     Indication: BIPOLAR DISORDER
     Route: 048
     Dates: end: 20060525
  13. RISPERDAL [Suspect]
     Active Substance: RISPERIDONE
     Indication: BIPOLAR DISORDER
     Dosage: VARYING DOSES OF UNSPECIFIED DOSE AND 01 MG, VARYING FREQUENCIES INCLUDED (HALF TABLET BID/BID/TID).
     Route: 048
     Dates: start: 20021114, end: 20031218
  14. RISPERDAL [Suspect]
     Active Substance: RISPERIDONE
     Indication: BIPOLAR DISORDER
     Route: 048
     Dates: start: 20040506
  15. RISPERDAL [Suspect]
     Active Substance: RISPERIDONE
     Indication: BIPOLAR DISORDER
     Route: 048
     Dates: end: 20040809
  16. RISPERDAL [Suspect]
     Active Substance: RISPERIDONE
     Indication: DEPRESSION
     Route: 048
     Dates: start: 20060426
  17. RISPERDAL [Suspect]
     Active Substance: RISPERIDONE
     Indication: AGGRESSION
     Dosage: VARYING DOSES OF 01 MG AND 03 MG, VARYING FREQUENCIES INCLUDED (03 EVERY DAY/ ONE EVERY DAY).
     Route: 048
     Dates: start: 20040615, end: 20040729
  18. RISPERDAL [Suspect]
     Active Substance: RISPERIDONE
     Indication: AGGRESSION
     Route: 048
     Dates: start: 20060426
  19. RISPERDAL [Suspect]
     Active Substance: RISPERIDONE
     Indication: BIPOLAR DISORDER
     Route: 048
     Dates: start: 19991122, end: 20000328
  20. RISPERDAL [Suspect]
     Active Substance: RISPERIDONE
     Indication: DEPRESSION
     Route: 048
     Dates: start: 20011126, end: 20020311
  21. RISPERDAL [Suspect]
     Active Substance: RISPERIDONE
     Indication: AGGRESSION
     Route: 048
     Dates: start: 19991122, end: 20000328
  22. RISPERDAL [Suspect]
     Active Substance: RISPERIDONE
     Indication: AGGRESSION
     Route: 048
     Dates: start: 20060425
  23. RISPERDAL [Suspect]
     Active Substance: RISPERIDONE
     Indication: DEPRESSION
     Route: 048
     Dates: end: 20040809
  24. RISPERDAL [Suspect]
     Active Substance: RISPERIDONE
     Indication: BIPOLAR DISORDER
     Route: 048
     Dates: start: 19990901
  25. RISPERDAL [Suspect]
     Active Substance: RISPERIDONE
     Indication: DEPRESSION
     Dosage: VARYING DOSES OF UNSPECIFIED DOSE AND 01 MG, VARYING FREQUENCIES INCLUDED (HALF TABLET BID/BID/TID).
     Route: 048
     Dates: start: 20021114, end: 20031218
  26. RISPERDAL [Suspect]
     Active Substance: RISPERIDONE
     Indication: DEPRESSION
     Route: 048
     Dates: start: 19990901
  27. RISPERDAL [Suspect]
     Active Substance: RISPERIDONE
     Indication: AGGRESSION
     Dosage: VARYING DOSES OF UNSPECIFIED DOSE AND 01 MG, VARYING FREQUENCIES INCLUDED (HALF TABLET BID/BID/TID).
     Route: 048
     Dates: start: 20021114, end: 20031218
  28. RISPERDAL [Suspect]
     Active Substance: RISPERIDONE
     Indication: AGGRESSION
     Route: 048
     Dates: start: 20011126, end: 20020311
  29. RISPERDAL [Suspect]
     Active Substance: RISPERIDONE
     Indication: AGGRESSION
     Route: 048
     Dates: start: 19990901
  30. RISPERDAL [Suspect]
     Active Substance: RISPERIDONE
     Indication: AGGRESSION
     Route: 048
     Dates: end: 20060525

REACTIONS (7)
  - Drug ineffective [Unknown]
  - Muscle twitching [Unknown]
  - Hyperglycaemia [Unknown]
  - Gynaecomastia [Unknown]
  - Emotional disorder [Unknown]
  - Weight increased [Unknown]
  - Hyperlipidaemia [Unknown]
